FAERS Safety Report 5356646-X (Version None)
Quarter: 2007Q2

REPORT INFORMATION
  Report Type: 
  Country: None (occurrence: None)
  Receive Date: 20070530
  Receipt Date: 20061101
  Transmission Date: 20071010
  Serious: Yes (Other)
  Sender: FDA-Public Use
  Company Number: US200608005547

PATIENT
  Age: 28 Year
  Sex: Male
  Weight: 117.9 kg

DRUGS (1)
  1. ZYPREXA [Suspect]
     Dosage: 20 MG
     Dates: start: 20000305

REACTIONS (12)
  - BLOOD CHOLESTEROL ABNORMAL [None]
  - BLOOD TRIGLYCERIDES INCREASED [None]
  - DIABETES MELLITUS [None]
  - DIABETIC KETOACIDOSIS [None]
  - GLYCOSURIA [None]
  - HYPERGLYCAEMIA [None]
  - HYPERINSULINISM [None]
  - HYPERTENSION [None]
  - INSULIN RESISTANCE [None]
  - METABOLIC DISORDER [None]
  - OBESITY [None]
  - VISION BLURRED [None]
